FAERS Safety Report 9027268 (Version 1)
Quarter: 2013Q1

REPORT INFORMATION
  Report Type: Spontaneous
  Country: GR (occurrence: GR)
  Receive Date: 20130123
  Receipt Date: 20130123
  Transmission Date: 20140127
  Serious: Yes (Other)
  Sender: FDA-Public Use
  Company Number: CHNY2013GR000520

PATIENT
  Age: 30 Year
  Sex: Male

DRUGS (1)
  1. COMTREX MAXIMUM STRENGTH COLD AND COUGH NON-DROWSY [Suspect]
     Dosage: UNK, UNK
     Dates: start: 20130119

REACTIONS (2)
  - Erythema [Unknown]
  - Local swelling [Unknown]
